FAERS Safety Report 22264989 (Version 1)
Quarter: 2023Q2

REPORT INFORMATION
  Report Type: Spontaneous
  Country: US (occurrence: US)
  Receive Date: 20230428
  Receipt Date: 20230428
  Transmission Date: 20230721
  Serious: No
  Sender: FDA-Public Use
  Company Number: US-LEO Pharma-343470

PATIENT
  Sex: Female

DRUGS (3)
  1. PROTOPIC [Suspect]
     Active Substance: TACROLIMUS
     Indication: Product used for unknown indication
     Route: 003
  2. CIBINQO [Concomitant]
     Active Substance: ABROCITINIB
     Indication: Product used for unknown indication
  3. ELIDEL [Suspect]
     Active Substance: PIMECROLIMUS
     Indication: Product used for unknown indication
     Route: 003

REACTIONS (1)
  - Drug ineffective [Unknown]
